FAERS Safety Report 21287229 (Version 2)
Quarter: 2022Q3

REPORT INFORMATION
  Report Type: Spontaneous
  Country: AU (occurrence: AU)
  Receive Date: 20220902
  Receipt Date: 20220907
  Transmission Date: 20221027
  Serious: Yes (Hospitalization, Other)
  Sender: FDA-Public Use
  Company Number: AU-PFIZER INC-PV202200054184

PATIENT
  Age: 39 Year
  Sex: Male

DRUGS (8)
  1. MYLOTARG [Suspect]
     Active Substance: GEMTUZUMAB OZOGAMICIN
     Indication: Acute myeloid leukaemia
     Dosage: 7+3 (CYTARABINE + IDARUBICIN) AND GEMTUZUMAB OZOGAMICIN 3 MG/M2
     Dates: start: 202111
  2. MYLOTARG [Suspect]
     Active Substance: GEMTUZUMAB OZOGAMICIN
     Dosage: CONSOLIDATION THERAPY WITH GEMTUZUMAB OZOGAMICIN (3 MG/M2 INFUSED OVER 2 HOURS ON DAY 1)
  3. MYLOTARG [Suspect]
     Active Substance: GEMTUZUMAB OZOGAMICIN
     Dosage: FURTHER CYCLE OF CONSOLIDATION WITH GEMTUZUMAB OZOGAMICIN (3 MG/M2 INFUSED OVER 2 HOURS ON DAY 1)
  4. CYTARABINE [Suspect]
     Active Substance: CYTARABINE
     Indication: Acute myeloid leukaemia
     Dosage: INITIATED WITH 7+3 (CYTARABINE + IDARUBICIN) AND GEMTUZUMAB OZOGAMICIN 3 MG/M2 ON DAYS 1, 4 AND 7
     Dates: start: 202111
  5. CYTARABINE [Suspect]
     Active Substance: CYTARABINE
     Dosage: CONSOLIDATION THERAPY WITH HIDAC (CYTARABINE 3G/M2 BD D1, 3, 5)
  6. CYTARABINE [Suspect]
     Active Substance: CYTARABINE
     Dosage: FURTHER CYCLE OF CONSOLIDATION WITH HIDAC (CYTARABINE 3G/M2 BD D1, 3, 5)
  7. CYTARABINE [Suspect]
     Active Substance: CYTARABINE
     Dosage: TWO FURTHER CONSOLIDATION CYCLES WITH HIDAC (CYTARABINE 2.5G/M2 BD D1, 3, 5) WITHOUT GEMTUZUMAB
  8. IDARUBICIN HYDROCHLORIDE [Suspect]
     Active Substance: IDARUBICIN HYDROCHLORIDE
     Indication: Acute myeloid leukaemia
     Dosage: WITH 7+3 (CYTARABINE + IDARUBICIN) AND GEMTUZUMAB OZOGAMICIN 3 MG/M2 ON DAYS 1, 4 AND 7
     Dates: start: 202111

REACTIONS (6)
  - Febrile neutropenia [Unknown]
  - Granulicatella infection [Unknown]
  - Inappropriate antidiuretic hormone secretion [Recovered/Resolved]
  - Streptococcal bacteraemia [Unknown]
  - Hyponatraemia [Recovered/Resolved]
  - Neoplasm recurrence [Unknown]
